FAERS Safety Report 8571714-7 (Version None)
Quarter: 2012Q3

REPORT INFORMATION
  Report Type: 
  Country: None (occurrence: None)
  Receive Date: 20120806
  Receipt Date: 20120802
  Transmission Date: 20120928
  Serious: Yes (Hospitalization)
  Sender: FDA-Public Use
  Company Number: PHHY2012PT066327

PATIENT
  Age: 84 Year
  Sex: Male

DRUGS (2)
  1. ONBREZ [Suspect]
     Dates: start: 20120701
  2. SPIRIVA [Concomitant]

REACTIONS (1)
  - RESPIRATORY TRACT INFECTION [None]
